FAERS Safety Report 9731548 (Version 1)
Quarter: 2013Q4

REPORT INFORMATION
  Report Type: Spontaneous
  Country: US (occurrence: US)
  Receive Date: 20131205
  Receipt Date: 20131205
  Transmission Date: 20140711
  Serious: Yes (Other)
  Sender: FDA-Public Use
  Company Number: US-BAYER-2013-144478

PATIENT
  Age: 66 Year
  Sex: Male

DRUGS (1)
  1. SOTALOL [Suspect]
     Indication: VENTRICULAR EXTRASYSTOLES
     Dosage: UNK
     Dates: start: 2008, end: 2013

REACTIONS (3)
  - Heart rate irregular [Not Recovered/Not Resolved]
  - Supraventricular extrasystoles [Not Recovered/Not Resolved]
  - Ventricular extrasystoles [Not Recovered/Not Resolved]
